FAERS Safety Report 8519102 (Version 3)
Quarter: 2013Q2

REPORT INFORMATION
  Report Type: Spontaneous
  Country: CA (occurrence: CA)
  Receive Date: 20120418
  Receipt Date: 20130429
  Transmission Date: 20140414
  Serious: Yes (Other)
  Sender: FDA-Public Use
  Company Number: CA-JNJFOC-20120402213

PATIENT
  Age: 30 Year
  Sex: Male
  Weight: 58 kg

DRUGS (9)
  1. REMICADE [Suspect]
     Indication: CROHN^S DISEASE
     Route: 042
     Dates: start: 20120403
  2. REMICADE [Suspect]
     Indication: CROHN^S DISEASE
     Dosage: 12 INFUSIONS IN TOTAL
     Route: 042
     Dates: start: 20120515
  3. REMICADE [Suspect]
     Indication: CROHN^S DISEASE
     Route: 042
     Dates: start: 20101208
  4. REMICADE [Suspect]
     Indication: CROHN^S DISEASE
     Route: 042
     Dates: start: 20120921
  5. VITAMIN B12 [Concomitant]
     Dosage: THEN MONTHLY
     Route: 058
     Dates: start: 201102
  6. BENADRYL [Concomitant]
     Indication: PREMEDICATION
     Route: 048
     Dates: start: 20120403
  7. PREDNISONE [Concomitant]
     Indication: PREMEDICATION
     Route: 048
     Dates: start: 20120403
  8. VENOFER [Concomitant]
     Route: 042
     Dates: start: 20110304
  9. COLESTID [Concomitant]
     Dosage: TOOK FOR 3 DAYS
     Route: 065
     Dates: start: 20120507

REACTIONS (9)
  - Vision blurred [Recovered/Resolved]
  - Infusion related reaction [Unknown]
  - Arthralgia [Not Recovered/Not Resolved]
  - Feeling abnormal [Unknown]
  - Pallor [Unknown]
  - Headache [Recovered/Resolved]
  - Nausea [Recovered/Resolved]
  - Dizziness [Unknown]
  - Feeling drunk [Unknown]
